FAERS Safety Report 4525448-6 (Version None)
Quarter: 2004Q4

REPORT INFORMATION
  Report Type: 
  Country: None (occurrence: None)
  Receive Date: 20041116
  Receipt Date: 20040809
  Transmission Date: 20050328
  Serious: No
  Sender: FDA-Public Use
  Company Number: S04-USA-05773-01

PATIENT
  Age: 87 Year
  Sex: Male

DRUGS (8)
  1. NAMENDA [Suspect]
     Indication: MEMORY IMPAIRMENT
     Dosage: 5 MG QD PO
     Route: 048
     Dates: start: 20040701, end: 20040101
  2. NAMENDA [Suspect]
     Indication: MEMORY IMPAIRMENT
     Dosage: 5 MG BID PO
     Route: 048
     Dates: start: 20040101
  3. ARICEPT [Concomitant]
  4. PLAVIX [Concomitant]
  5. TRENTAL [Concomitant]
  6. LIPITOR [Concomitant]
  7. TENORMIN [Concomitant]
  8. ACETYLSALICYLIC ACID SRT [Concomitant]

REACTIONS (2)
  - CONFUSIONAL STATE [None]
  - IRRITABILITY [None]
